FAERS Safety Report 5904689-7 (Version None)
Quarter: 2008Q4

REPORT INFORMATION
  Report Type: 
  Country: None (occurrence: None)
  Receive Date: 20081001
  Receipt Date: 20080924
  Transmission Date: 20090506
  Serious: Yes (Other)
  Sender: FDA-Public Use
  Company Number: CN-JNJFOC-20080905779

PATIENT
  Age: 9 Year
  Sex: Female
  Weight: 33 kg

DRUGS (3)
  1. TYLENOL (CAPLET) [Suspect]
     Route: 048
  2. TYLENOL (CAPLET) [Suspect]
     Indication: PYREXIA
     Route: 048
  3. NIMESULIDE [Concomitant]
     Indication: ANTIPYRESIS
     Route: 048

REACTIONS (5)
  - BODY TEMPERATURE DECREASED [None]
  - CYANOSIS [None]
  - ELECTROCARDIOGRAM T WAVE ABNORMAL [None]
  - INCORRECT DOSE ADMINISTERED [None]
  - MYOCARDIAL ISCHAEMIA [None]
